FAERS Safety Report 14056398 (Version 2)
Quarter: 2017Q4

REPORT INFORMATION
  Report Type: Spontaneous
  Country: RU (occurrence: RU)
  Receive Date: 20171006
  Receipt Date: 20171013
  Transmission Date: 20180321
  Serious: Yes (Hospitalization, Other)
  Sender: FDA-Public Use
  Company Number: RU-ASTRAZENECA-2017SF00148

PATIENT
  Age: 64 Year
  Sex: Female
  Weight: 95 kg

DRUGS (8)
  1. THROMBO ASS [Concomitant]
     Active Substance: ASPIRIN
  2. PRESTANCE [Concomitant]
     Active Substance: AMLODIPINE BESYLATE\PERINDOPRIL ARGININE
  3. CRESTOR [Concomitant]
     Active Substance: ROSUVASTATIN CALCIUM
  4. BRILINTA [Suspect]
     Active Substance: TICAGRELOR
     Indication: STENT PLACEMENT
     Route: 048
     Dates: start: 20170316
  5. BETALOC [Concomitant]
     Active Substance: METOPROLOL TARTRATE
  6. ZOCARDIS [Concomitant]
  7. AFOBAZOL [Concomitant]
  8. CARDIKET [Concomitant]
     Active Substance: ISOSORBIDE DINITRATE

REACTIONS (1)
  - Coronary artery occlusion [Unknown]
